FAERS Safety Report 7948154-4 (Version None)
Quarter: 2011Q4

REPORT INFORMATION
  Report Type: 
  Country: None (occurrence: None)
  Receive Date: 20111130
  Receipt Date: 20111116
  Transmission Date: 20120403
  Serious: Yes (Other)
  Sender: FDA-Public Use
  Company Number: IN-RANBAXY-2010RR-38101

PATIENT
  Age: 53 Year
  Sex: Male

DRUGS (9)
  1. LAMIVUDINE(PEPFAR) [Suspect]
     Indication: HIV INFECTION
  2. ONCOVIN [Concomitant]
  3. COTRIM [Concomitant]
  4. PREDNISONE TAB [Concomitant]
  5. EFAVIRENZ [Suspect]
     Indication: HIV INFECTION
  6. ATORVASTATIN [Concomitant]
     Dosage: 20 MG, UNK
  7. ZIDOVUDINE [Suspect]
     Indication: HIV INFECTION
  8. DOXORUBICIN HCL [Concomitant]
  9. CYCLOPHOSPHAMIDE [Concomitant]

REACTIONS (2)
  - IMMUNE RECONSTITUTION SYNDROME [None]
  - TUBERCULOSIS [None]
